FAERS Safety Report 10442209 (Version 1)
Quarter: 2014Q3

REPORT INFORMATION
  Report Type: Spontaneous
  Country: JP (occurrence: JP)
  Receive Date: 20140909
  Receipt Date: 20140909
  Transmission Date: 20150326
  Serious: Yes (Death, Hospitalization)
  Sender: FDA-Public Use
  Company Number: PHHY2014JP111485

PATIENT
  Age: 66 Year
  Sex: Male

DRUGS (3)
  1. PREDNISOLONE. [Suspect]
     Active Substance: PREDNISOLONE
     Indication: PLEURISY
     Dosage: 20 MG, PER DAY
  2. ENALAPRIL [Suspect]
     Active Substance: ENALAPRIL
     Indication: BLOOD PRESSURE
  3. PREDNISOLONE. [Suspect]
     Active Substance: PREDNISOLONE
     Indication: MYOSITIS
     Dosage: 30 MG, PER DAY

REACTIONS (13)
  - Pneumonia aspiration [Fatal]
  - Gastrointestinal hypomotility [Unknown]
  - Atrioventricular block [Unknown]
  - Systemic sclerosis [Unknown]
  - Loss of consciousness [Unknown]
  - Haemolytic anaemia [Unknown]
  - Scleroderma renal crisis [Unknown]
  - Thrombocytopenia [Unknown]
  - Haemoglobin decreased [Unknown]
  - Thrombotic microangiopathy [Unknown]
  - Renin increased [Unknown]
  - Renal impairment [Unknown]
  - Blood pressure increased [Unknown]
